FAERS Safety Report 6639018-7 (Version None)
Quarter: 2010Q1

REPORT INFORMATION
  Report Type: 
  Country: None (occurrence: None)
  Receive Date: 20100317
  Receipt Date: 20100305
  Transmission Date: 20100710
  Serious: Yes (Hospitalization, Disabling, Other)
  Sender: FDA-Public Use
  Company Number: US-PFIZER INC-2010029310

PATIENT
  Sex: Female
  Weight: 61.224 kg

DRUGS (4)
  1. XANAX [Suspect]
     Indication: NERVOUSNESS
     Dosage: 1 MG, DAILY
     Route: 048
     Dates: start: 20050101
  2. NEXIUM [Concomitant]
     Dosage: UNK
  3. ATENOLOL [Concomitant]
     Dosage: UNK
  4. REGLAN [Concomitant]
     Dosage: UNK

REACTIONS (3)
  - AMNESIA [None]
  - FIBROMYALGIA [None]
  - LIFE SUPPORT [None]
